FAERS Safety Report 4520931-1 (Version None)
Quarter: 2004Q4

REPORT INFORMATION
  Report Type: 
  Country: None (occurrence: None)
  Receive Date: 20041208
  Receipt Date: 20041201
  Transmission Date: 20050328
  Serious: Yes (Hospitalization)
  Sender: FDA-Public Use
  Company Number: GB-BRISTOL-MYERS SQUIBB COMPANY-12781621

PATIENT
  Age: 37 Year
  Sex: Female
  Weight: 60 kg

DRUGS (3)
  1. CYCLOPHOSPHAMIDE [Suspect]
     Indication: BREAST CANCER
     Dates: start: 20041027, end: 20041027
  2. PACLITAXEL [Suspect]
     Indication: BREAST CANCER
     Dates: start: 20041117, end: 20041117
  3. EPIRUBICIN [Suspect]
     Indication: BREAST CANCER
     Dates: start: 20041027, end: 20041027

REACTIONS (2)
  - CHEST DISCOMFORT [None]
  - DYSPNOEA [None]
